FAERS Safety Report 11127084 (Version 3)
Quarter: 2015Q4

REPORT INFORMATION
  Report Type: Report from Study
  Country: US (occurrence: US)
  Receive Date: 20150521
  Receipt Date: 20151118
  Transmission Date: 20160304
  Serious: Yes (Hospitalization, Other)
  Sender: FDA-Public Use
  Company Number: US-ALEXION PHARMACEUTICALS INC.-A201501727

PATIENT
  Age: 26 Year
  Sex: Male

DRUGS (1)
  1. SOLIRIS [Suspect]
     Active Substance: ECULIZUMAB
     Indication: HAEMOLYTIC URAEMIC SYNDROME
     Dosage: 1200 MG, Q2W
     Route: 042
     Dates: start: 20130622

REACTIONS (6)
  - Pneumonia [Unknown]
  - Dehydration [Unknown]
  - Seizure [Not Recovered/Not Resolved]
  - Blood creatinine increased [Unknown]
  - Memory impairment [Unknown]
  - Sepsis [Unknown]

NARRATIVE: CASE EVENT DATE: 20150102
